FAERS Safety Report 7818874-0 (Version None)
Quarter: 2011Q4

REPORT INFORMATION
  Report Type: 
  Country: None (occurrence: None)
  Receive Date: 20111017
  Receipt Date: 20111017
  Transmission Date: 20120403
  Serious: Yes (Hospitalization)
  Sender: FDA-Public Use
  Company Number: None

PATIENT
  Age: 62 Year
  Sex: Male
  Weight: 93.2 kg

DRUGS (1)
  1. INSULIN [Suspect]
     Indication: TYPE 1 DIABETES MELLITUS
     Dosage: 25 UNITS AM SQ
     Route: 058
     Dates: start: 20110915

REACTIONS (2)
  - UNRESPONSIVE TO STIMULI [None]
  - HYPOGLYCAEMIA [None]
